FAERS Safety Report 6200339-3 (Version None)
Quarter: 2009Q2

REPORT INFORMATION
  Report Type: 
  Country: None (occurrence: None)
  Receive Date: 20090522
  Receipt Date: 20090512
  Transmission Date: 20091009
  Serious: Yes (Other)
  Sender: FDA-Public Use
  Company Number: US-GILEAD-2009-0021638

PATIENT
  Sex: Female
  Weight: 68.1 kg

DRUGS (9)
  1. ATRIPLA [Suspect]
     Indication: HIV INFECTION
     Route: 048
  2. CALCIUM [Concomitant]
  3. LEVOCARNITINE [Concomitant]
  4. COQ-10 [Concomitant]
  5. DRISDOL [Concomitant]
  6. THIAMINE HCL [Concomitant]
  7. ASCORBIC ACID [Concomitant]
  8. ZOCOR [Concomitant]
  9. NEURONTIN [Concomitant]

REACTIONS (9)
  - ARTHRALGIA [None]
  - BONE PAIN [None]
  - FRACTURED SACRUM [None]
  - HYPOAESTHESIA [None]
  - MUSCULAR WEAKNESS [None]
  - MYALGIA [None]
  - OSTEOMALACIA [None]
  - PARAESTHESIA [None]
  - VITAMIN D DECREASED [None]
